FAERS Safety Report 12470956 (Version 1)
Quarter: 2016Q2

REPORT INFORMATION
  Report Type: Spontaneous
  Country: IT (occurrence: IT)
  Receive Date: 20160616
  Receipt Date: 20160616
  Transmission Date: 20160815
  Serious: Yes (Hospitalization)
  Sender: FDA-Public Use
  Company Number: IT-AUROBINDO-AUR-APL-2016-07846

PATIENT
  Age: 36 Year
  Sex: Male

DRUGS (4)
  1. OXICODONE ACCORD [Suspect]
     Active Substance: OXYCODONE
     Indication: INTERVERTEBRAL DISC DISORDER
     Route: 065
  2. DULOXETINE HYDROCHLORIDE. [Suspect]
     Active Substance: DULOXETINE HYDROCHLORIDE
     Indication: DEPRESSION
     Route: 065
  3. PARACETAMOL [Suspect]
     Active Substance: ACETAMINOPHEN
     Indication: PAIN
     Route: 065
  4. RIVOTRIL [Suspect]
     Active Substance: CLONAZEPAM
     Indication: INTERVERTEBRAL DISC DISORDER
     Dosage: TOTAL
     Route: 048

REACTIONS (8)
  - Altered state of consciousness [Recovering/Resolving]
  - Confusional state [Recovering/Resolving]
  - Drug abuse [Recovering/Resolving]
  - Apraxia [Recovering/Resolving]
  - Blood creatine decreased [None]
  - Disorientation [Recovering/Resolving]
  - Alanine aminotransferase increased [Recovering/Resolving]
  - Alcohol use [None]

NARRATIVE: CASE EVENT DATE: 20160428
